FAERS Safety Report 5915097-7 (Version None)
Quarter: 2008Q4

REPORT INFORMATION
  Report Type: 
  Country: None (occurrence: None)
  Receive Date: 20081010
  Receipt Date: 20081002
  Transmission Date: 20090506
  Serious: Yes (Other)
  Sender: FDA-Public Use
  Company Number: B0530537A

PATIENT
  Age: 60 Year
  Sex: Female

DRUGS (4)
  1. AVANDIA [Suspect]
     Dosage: 4MG PER DAY
     Route: 048
     Dates: start: 20030101, end: 20080712
  2. LIPITOR [Suspect]
  3. METFORMIN HCL [Concomitant]
  4. ANTIHYPERTENSIVE [Concomitant]

REACTIONS (1)
  - LEUKOPENIA [None]
